FAERS Safety Report 12708233 (Version 1)
Quarter: 2016Q3

REPORT INFORMATION
  Report Type: Spontaneous
  Country: FR (occurrence: FR)
  Receive Date: 20160901
  Receipt Date: 20160901
  Transmission Date: 20161109
  Serious: Yes (Life-Threatening)
  Sender: FDA-Public Use
  Company Number: FR-009507513-1608FRA015008

PATIENT
  Age: 60 Year
  Sex: Male

DRUGS (4)
  1. NAROPEINE [Suspect]
     Active Substance: ROPIVACAINE HYDROCHLORIDE
     Indication: ANAESTHESIA
     Dosage: 300 MG, ONCE
     Dates: start: 20160715, end: 20160715
  2. ESMERON [Suspect]
     Active Substance: ROCURONIUM BROMIDE
     Dosage: 10 MG, ONCE
     Route: 042
     Dates: start: 20160715, end: 20160715
  3. ESMERON [Suspect]
     Active Substance: ROCURONIUM BROMIDE
     Indication: ANAESTHESIA
     Dosage: UNK, ONCE
     Dates: start: 20160715, end: 20160715
  4. BRIDION [Suspect]
     Active Substance: SUGAMMADEX
     Indication: ANAESTHESIA
     Dosage: 200 MG, ONCE
     Route: 042
     Dates: start: 20160715, end: 20160715

REACTIONS (1)
  - Cardio-respiratory arrest [Recovered/Resolved]

NARRATIVE: CASE EVENT DATE: 20160715
